FAERS Safety Report 19661115 (Version 1)
Quarter: 2021Q3

REPORT INFORMATION
  Report Type: Spontaneous
  Country: US (occurrence: US)
  Receive Date: 20210805
  Receipt Date: 20210805
  Transmission Date: 20211014
  Serious: No
  Sender: FDA-Public Use
  Company Number: US-GLENMARK PHARMACEUTICALS-2021GMK052151

PATIENT

DRUGS (2)
  1. ADAPALENE GEL USP, 0.1 % [Suspect]
     Active Substance: ADAPALENE
     Indication: SKIN DISORDER
     Dosage: UNK (NO PROBLEM PATIENT HAD WHILE USING)
     Route: 061
     Dates: start: 2020
  2. ADAPALENE GEL USP, 0.1 % [Suspect]
     Active Substance: ADAPALENE
     Dosage: UNK (COMPLAINT BATCH)
     Route: 061
     Dates: start: 20210204

REACTIONS (5)
  - Drug ineffective [Unknown]
  - Product formulation issue [Unknown]
  - Pruritus [Not Recovered/Not Resolved]
  - Skin exfoliation [Unknown]
  - Product quality issue [Unknown]

NARRATIVE: CASE EVENT DATE: 202102
